FAERS Safety Report 9279558 (Version 1)
Quarter: 2013Q2

REPORT INFORMATION
  Report Type: Report from Study
  Country: US (occurrence: US)
  Receive Date: 20130509
  Receipt Date: 20130509
  Transmission Date: 20140414
  Serious: Yes (Hospitalization)
  Sender: FDA-Public Use
  Company Number: US-ROCHE-1186149

PATIENT
  Age: 61 Year
  Sex: Male
  Weight: 95 kg

DRUGS (5)
  1. PEG-INTERFERON ALFA 2A [Suspect]
     Indication: CHRONIC HEPATITIS C
     Dosage: 25/JAN/2013: DATE OF MOST RECENT DOSE.
     Route: 058
     Dates: start: 20121026, end: 20130128
  2. RIBAVIRIN [Suspect]
     Indication: CHRONIC HEPATITIS C
     Dosage: 28/JAN/2013: DATE OF MOST RECENT DOSE.
     Route: 048
     Dates: start: 20121026, end: 20130128
  3. TELAPREVIR [Suspect]
     Indication: CHRONIC HEPATITIS C
     Dosage: 18/JAN/2013: DATE OF MOST RECENT DOSE
     Route: 048
     Dates: start: 20121026
  4. DOCUSATE [Concomitant]
  5. LISINOPRIL [Concomitant]
     Route: 065

REACTIONS (1)
  - Head injury [Recovered/Resolved]
